FAERS Safety Report 7559568-9 (Version None)
Quarter: 2011Q2

REPORT INFORMATION
  Report Type: 
  Country: None (occurrence: None)
  Receive Date: 20110621
  Receipt Date: 20110615
  Transmission Date: 20111010
  Serious: Yes (Other)
  Sender: FDA-Public Use
  Company Number: BR-PFIZER INC-2011116166

PATIENT
  Age: 61 Year
  Sex: Female
  Weight: 72 kg

DRUGS (11)
  1. LORAX [Concomitant]
     Indication: AGITATION
     Dosage: 2 MG, 1X/DAY
     Dates: start: 20030101
  2. CAPTOPRIL [Concomitant]
     Indication: HYPERTENSION
     Dosage: 25 MG, 2X/DAY
     Dates: start: 20090101
  3. FORMOTEROL FUMARATE [Concomitant]
     Indication: ASTHMA
     Dosage: UNK, 2X/DAY
     Dates: start: 20110517
  4. SERETIDE [Concomitant]
     Dosage: UNK, 2X/DAY
     Dates: start: 20110517
  5. VARENICLINE TARTRATE [Suspect]
     Dosage: 1 MG, 2X/DAY (EVERY 12 HOURS)
     Route: 048
     Dates: start: 20110501, end: 20110101
  6. LORAX [Concomitant]
     Indication: DEATH OF RELATIVE
  7. AEROCORT [Concomitant]
     Indication: ASTHMA
     Dosage: UNK, AS NEEDED
  8. ONBREZ [Concomitant]
     Indication: ASTHMA
     Dosage: UNK, 1X/DAY
  9. VARENICLINE TARTRATE [Suspect]
     Indication: TOBACCO USER
     Dosage: UNK
     Route: 048
     Dates: start: 20110517
  10. FORMOTEROL FUMARATE [Concomitant]
     Indication: CHRONIC OBSTRUCTIVE PULMONARY DISEASE
  11. BAMIFIX [Concomitant]
     Dosage: UNK, 1X/DAY
     Dates: start: 20090101

REACTIONS (8)
  - DEPRESSION [None]
  - HALLUCINATION [None]
  - ASTHMATIC CRISIS [None]
  - SYNCOPE [None]
  - DYSPNOEA [None]
  - NERVOUSNESS [None]
  - HYPERTENSION [None]
  - MENTAL IMPAIRMENT [None]
